FAERS Safety Report 6168800-8 (Version None)
Quarter: 2009Q2

REPORT INFORMATION
  Report Type: 
  Country: None (occurrence: None)
  Receive Date: 20090424
  Receipt Date: 20090424
  Transmission Date: 20091009
  Serious: No
  Sender: FDA-Public Use
  Company Number: None

PATIENT
  Age: 59 Year
  Sex: Male
  Weight: 77.56 kg

DRUGS (2)
  1. CLOZAPINE [Suspect]
     Indication: SCHIZOPHRENIA
     Dosage: 200 MG AT BEDTIME PO
     Route: 048
     Dates: start: 20090312, end: 20090413
  2. ASPIRIN [Suspect]
     Indication: PAIN
     Dosage: 650 MG PRN PO
     Route: 048
     Dates: start: 20090323, end: 20090413

REACTIONS (1)
  - EOSINOPHILIA [None]
